FAERS Safety Report 17620409 (Version 1)
Quarter: 2020Q2

REPORT INFORMATION
  Report Type: Spontaneous
  Country: US (occurrence: US)
  Receive Date: 20200403
  Receipt Date: 20200403
  Transmission Date: 20200713
  Serious: No
  Sender: FDA-Public Use
  Company Number: US-DRREDDYS-USA/USA/20/0121263

PATIENT
  Age: 23 Year
  Sex: Female
  Weight: 57.15 kg

DRUGS (1)
  1. ZENATANE [Suspect]
     Active Substance: ISOTRETINOIN
     Indication: ACNE
     Dosage: 5 YEARS AGO
     Route: 048
     Dates: start: 2015

REACTIONS (1)
  - Acne [Unknown]
